FAERS Safety Report 20900325 (Version 2)
Quarter: 2022Q2

REPORT INFORMATION
  Report Type: Spontaneous
  Country: TW (occurrence: TW)
  Receive Date: 20220601
  Receipt Date: 20220614
  Transmission Date: 20220721
  Serious: Yes (Hospitalization)
  Sender: FDA-Public Use
  Company Number: TW-CHUGAI-2022018226

PATIENT
  Age: 58 Year
  Sex: Female

DRUGS (14)
  1. ACTEMRA [Suspect]
     Active Substance: TOCILIZUMAB
     Indication: Neuromyelitis optica spectrum disorder
     Dosage: 8 MILLIGRAM/KILOGRAM
     Route: 042
  2. ACTEMRA [Suspect]
     Active Substance: TOCILIZUMAB
     Route: 041
     Dates: start: 20200116
  3. ACTEMRA [Suspect]
     Active Substance: TOCILIZUMAB
     Dosage: 400MG, EVERY 6-8 WEEKS
     Route: 041
     Dates: start: 20210922
  4. ACTEMRA [Suspect]
     Active Substance: TOCILIZUMAB
     Dosage: 400MG, EVERY 4-6 WEEKS
     Route: 041
     Dates: start: 20220216
  5. ACTEMRA [Suspect]
     Active Substance: TOCILIZUMAB
     Dosage: 400MG, EVERY 6-8 WEEKS
     Route: 041
     Dates: start: 20220321
  6. ACTEMRA [Suspect]
     Active Substance: TOCILIZUMAB
     Dosage: TOCILIZUMAB 400MG (LATEST DOSE)
     Route: 041
     Dates: start: 20210630
  7. PREDNISOLONE [Concomitant]
     Active Substance: PREDNISOLONE
     Dosage: 10-50MG, QD
     Route: 048
     Dates: start: 20190811, end: 20200116
  8. AZATHIOPRINE [Concomitant]
     Active Substance: AZATHIOPRINE
     Dosage: 50 MILLIGRAM
     Route: 065
     Dates: start: 20190811, end: 20191010
  9. AZATHIOPRINE [Concomitant]
     Active Substance: AZATHIOPRINE
     Dosage: 50MG/DAY
     Route: 065
     Dates: start: 20210922
  10. AZATHIOPRINE [Concomitant]
     Active Substance: AZATHIOPRINE
     Dosage: 25MG/DAY
     Route: 065
     Dates: start: 20220321
  11. LYRICA [Concomitant]
     Active Substance: PREGABALIN
     Dosage: 75 MILLIGRAM, QD
     Route: 048
  12. RIVOTRIL [Concomitant]
     Active Substance: CLONAZEPAM
     Dosage: 0.5 MILLIGRAM, QD
  13. UROPRIN [Concomitant]
     Dosage: 100 MILLIGRAM, TID
     Route: 048
  14. XYZAL [Concomitant]
     Active Substance: LEVOCETIRIZINE DIHYDROCHLORIDE
     Dosage: 5 MILLIGRAM, QD
     Route: 048

REACTIONS (3)
  - Neuromyelitis optica spectrum disorder [Unknown]
  - Urinary tract infection [Unknown]
  - Off label use [Unknown]

NARRATIVE: CASE EVENT DATE: 20210708
